FAERS Safety Report 7145498-3 (Version None)
Quarter: 2010Q4

REPORT INFORMATION
  Report Type: 
  Country: None (occurrence: None)
  Receive Date: 20101208
  Receipt Date: 20101201
  Transmission Date: 20110411
  Serious: Yes (Disabling)
  Sender: FDA-Public Use
  Company Number: EC-ROCHE-746146

PATIENT
  Sex: Female
  Weight: 62.6 kg

DRUGS (1)
  1. BONIVA [Suspect]
     Indication: OSTEOPOROSIS
     Dosage: FREQUENCY:EVERY MONTH
     Route: 048
     Dates: start: 20100313

REACTIONS (1)
  - NEPHROLITHIASIS [None]
